FAERS Safety Report 5276961-8 (Version None)
Quarter: 2007Q1

REPORT INFORMATION
  Report Type: 
  Country: None (occurrence: None)
  Receive Date: 20061213
  Receipt Date: 20050103
  Transmission Date: 20070707
  Serious: No
  Sender: FDA-Public Use
  Company Number: 2005UW00101

PATIENT
  Age: 10 Year
  Sex: Male

DRUGS (3)
  1. SEROQUEL [Suspect]
     Dosage: 125 MG QD; PO
     Route: 048
  2. SEROQUEL [Suspect]
     Dosage: 150 MG QD; PO
     Route: 048
  3. ADDERALL 10 [Concomitant]

REACTIONS (2)
  - MUSCLE RIGIDITY [None]
  - PARKINSONISM [None]
